FAERS Safety Report 20664898 (Version 2)
Quarter: 2022Q2

REPORT INFORMATION
  Report Type: Spontaneous
  Country: JP (occurrence: JP)
  Receive Date: 20220401
  Receipt Date: 20220524
  Transmission Date: 20220721
  Serious: Yes (Death, Life-Threatening, Hospitalization, Other)
  Sender: FDA-Public Use
  Company Number: JP-MSD-M2022-10304

PATIENT
  Age: 83 Year
  Sex: Male
  Weight: 71 kg

DRUGS (1)
  1. KEYTRUDA [Suspect]
     Active Substance: PEMBROLIZUMAB
     Indication: Oropharyngeal cancer stage IV
     Dosage: 200 MILLIGRAM, Q3W
     Route: 041
     Dates: start: 20211109, end: 20211221

REACTIONS (4)
  - Septic shock [Fatal]
  - Interstitial lung disease [Fatal]
  - Multiple organ dysfunction syndrome [Fatal]
  - Cardiac failure [Unknown]

NARRATIVE: CASE EVENT DATE: 20220111
